FAERS Safety Report 24771036 (Version 1)
Quarter: 2024Q4

REPORT INFORMATION
  Report Type: Spontaneous
  Country: CA (occurrence: None)
  Receive Date: 20241224
  Receipt Date: 20241224
  Transmission Date: 20250115
  Serious: Yes (Life-Threatening, Disabling)
  Sender: Public
  Company Number: None

PATIENT
  Age: 26 Year
  Sex: Male
  Weight: 78.75 kg

DRUGS (8)
  1. FLUOXETINE [Suspect]
     Active Substance: FLUOXETINE HYDROCHLORIDE
     Indication: Obsessive-compulsive disorder
     Dosage: 2 CAPSULES ORAL ?
     Route: 048
     Dates: start: 20180201, end: 20200201
  2. SELEGILINE 20MY DAILY [Concomitant]
  3. MODAFINIL 200MG DAILY [Concomitant]
  4. TADALFIL 20MG [Concomitant]
  5. VIAGRA 100MG [Concomitant]
  6. COMPRESSION GARMETS (STOCKINGS, ABDOMINAL BINDER)FOR pots [Concomitant]
  7. SODIUM ELECTROLYTES 5000MG DAILY [Concomitant]
  8. CREATINE 5GRAMS DAILY [Concomitant]

REACTIONS (10)
  - Sexual dysfunction [None]
  - Memory impairment [None]
  - Chronic fatigue syndrome [None]
  - Chronic fatigue syndrome [None]
  - Orthostatic hypotension [None]
  - Autonomic nervous system imbalance [None]
  - Small fibre neuropathy [None]
  - Autonomic neuropathy [None]
  - Sexual dysfunction [None]
  - Postural orthostatic tachycardia syndrome [None]

NARRATIVE: CASE EVENT DATE: 20200201
